FAERS Safety Report 24366674 (Version 1)
Quarter: 2024Q3

REPORT INFORMATION
  Report Type: Spontaneous
  Country: US (occurrence: None)
  Receive Date: 20240925
  Receipt Date: 20240925
  Transmission Date: 20241017
  Serious: Yes (Other)
  Sender: Public
  Company Number: None

PATIENT
  Age: 37 Year
  Sex: Male
  Weight: 118.35 kg

DRUGS (4)
  1. SPRAVATO [Suspect]
     Active Substance: ESKETAMINE
     Indication: Major depression
     Dosage: OTHER FREQUENCY : BI-WEEKLY;?
     Route: 045
     Dates: start: 20240402, end: 20240924
  2. Auvelity ER 45-105mg [Concomitant]
     Dates: start: 20240828
  3. doxepin 25 to 50mg [Concomitant]
     Dates: start: 20231212
  4. MODAFINIL [Concomitant]
     Active Substance: MODAFINIL
     Dates: start: 20220126

REACTIONS (9)
  - Depression [None]
  - Suicidal ideation [None]
  - Panic attack [None]
  - Hyperhidrosis [None]
  - Hyperventilation [None]
  - Tachycardia [None]
  - Blood pressure increased [None]
  - Confusional state [None]
  - Feeling abnormal [None]

NARRATIVE: CASE EVENT DATE: 20240924
